FAERS Safety Report 10601005 (Version 2)
Quarter: 2014Q4

REPORT INFORMATION
  Report Type: Report from Study
  Country: US (occurrence: US)
  Receive Date: 20141124
  Receipt Date: 20141229
  Transmission Date: 20150529
  Serious: Yes (Hospitalization)
  Sender: FDA-Public Use
  Company Number: PHEH2014US022989

PATIENT
  Sex: Male

DRUGS (1)
  1. CLOZARIL [Suspect]
     Active Substance: CLOZAPINE
     Indication: PSYCHOTIC DISORDER
     Dosage: 325 MG QD (100 MG QAM PLUS 225 MG QBED TIME)
     Route: 048
     Dates: end: 20141107

REACTIONS (3)
  - Conduct disorder [Unknown]
  - Impulse-control disorder [Unknown]
  - Psychotic disorder [Unknown]
